FAERS Safety Report 7759172-3 (Version None)
Quarter: 2011Q3

REPORT INFORMATION
  Report Type: 
  Country: None (occurrence: None)
  Receive Date: 20110915
  Receipt Date: 20110831
  Transmission Date: 20111222
  Serious: Yes (Other)
  Sender: FDA-Public Use
  Company Number: 2011AP001912

PATIENT
  Age: 38 Year
  Sex: Male

DRUGS (12)
  1. MIRTAZAPINE [Suspect]
     Indication: PRODUCT USED FOR UNKNOWN INDICATION
  2. RISPERDAL [Suspect]
     Indication: PRODUCT USED FOR UNKNOWN INDICATION
  3. SEROQUEL [Suspect]
     Indication: PRODUCT USED FOR UNKNOWN INDICATION
  4. SUMATRIPTAN SUCCINATE [Concomitant]
  5. METAXALONE [Concomitant]
  6. DEPAKOTE [Concomitant]
  7. LITHIUM CARBONATE [Suspect]
     Indication: PRODUCT USED FOR UNKNOWN INDICATION
  8. SERTRALINE HYDROCHLORIDE [Concomitant]
  9. ZOLMITRIPTAN [Concomitant]
  10. SUMATRIPTAN SUCCINATE [Concomitant]
  11. HYDROCHLORIDE [Concomitant]
  12. CARISOPRODOL [Concomitant]

REACTIONS (24)
  - RASH [None]
  - PRODUCT FORMULATION ISSUE [None]
  - DRUG INEFFECTIVE [None]
  - BREAST ENLARGEMENT [None]
  - MEMORY IMPAIRMENT [None]
  - AGITATION [None]
  - CONSTIPATION [None]
  - AGGRESSION [None]
  - TINNITUS [None]
  - FEELING ABNORMAL [None]
  - ERECTION INCREASED [None]
  - DISTURBANCE IN ATTENTION [None]
  - GASTRIC ULCER [None]
  - MUSCLE SPASMS [None]
  - DEAFNESS [None]
  - RECTAL HAEMORRHAGE [None]
  - INFLUENZA LIKE ILLNESS [None]
  - WEIGHT INCREASED [None]
  - FATIGUE [None]
  - UNEVALUABLE EVENT [None]
  - INSOMNIA [None]
  - DRUG EFFECT DECREASED [None]
  - SUICIDAL BEHAVIOUR [None]
  - HEADACHE [None]
